FAERS Safety Report 11839653 (Version 1)
Quarter: 2015Q4

REPORT INFORMATION
  Report Type: Spontaneous
  Country: US (occurrence: US)
  Receive Date: 20151216
  Receipt Date: 20151216
  Transmission Date: 20160305
  Serious: Yes (Death, Hospitalization)
  Sender: FDA-Public Use
  Company Number: US-JNJFOC-20151205946

PATIENT
  Age: 46 Year
  Sex: Female

DRUGS (6)
  1. ACETAMINOPHEN. [Suspect]
     Active Substance: ACETAMINOPHEN
     Indication: PRODUCT USED FOR UNKNOWN INDICATION
     Route: 048
  2. SERTRALINE [Suspect]
     Active Substance: SERTRALINE HYDROCHLORIDE
     Indication: PRODUCT USED FOR UNKNOWN INDICATION
  3. ACETAMINOPHEN. [Suspect]
     Active Substance: ACETAMINOPHEN
     Route: 048
  4. BUSPIRONE [Suspect]
     Active Substance: BUSPIRONE HYDROCHLORIDE
     Indication: PRODUCT USED FOR UNKNOWN INDICATION
  5. QUETIAPINE [Suspect]
     Active Substance: QUETIAPINE
     Indication: PRODUCT USED FOR UNKNOWN INDICATION
  6. ESCITALOPRAM [Suspect]
     Active Substance: ESCITALOPRAM OXALATE
     Indication: PRODUCT USED FOR UNKNOWN INDICATION

REACTIONS (2)
  - Exposure via ingestion [None]
  - Toxicity to various agents [Fatal]
